FAERS Safety Report 16626302 (Version 1)
Quarter: 2019Q3

REPORT INFORMATION
  Report Type: Spontaneous
  Country: US (occurrence: US)
  Receive Date: 20190724
  Receipt Date: 20190724
  Transmission Date: 20191004
  Serious: No
  Sender: FDA-Public Use
  Company Number: US-SHIRE-US201922828

PATIENT
  Sex: Male

DRUGS (1)
  1. TAKHZYRO [Suspect]
     Active Substance: LANADELUMAB-FLYO
     Indication: PRODUCT USED FOR UNKNOWN INDICATION
     Dosage: UNK UNK, 1X A MONTH
     Route: 065
     Dates: start: 20190710

REACTIONS (5)
  - Musculoskeletal stiffness [Unknown]
  - Arthropod bite [Unknown]
  - Fear of injection [Unknown]
  - Arthralgia [Unknown]
  - Muscle discomfort [Unknown]
